FAERS Safety Report 17740198 (Version 1)
Quarter: 2020Q2

REPORT INFORMATION
  Report Type: Spontaneous
  Country: US (occurrence: US)
  Receive Date: 20200501
  Receipt Date: 20200501
  Transmission Date: 20200714
  Serious: No
  Sender: FDA-Public Use
  Company Number: None

PATIENT
  Sex: Female

DRUGS (1)
  1. GENTAMICIN SULFATE. [Suspect]
     Active Substance: GENTAMICIN SULFATE
     Indication: URINARY TRACT INFECTION
     Dosage: ?          OTHER FREQUENCY:Q24H;?
     Route: 042
     Dates: start: 20200417

REACTIONS (2)
  - Hyperacusis [None]
  - Ototoxicity [None]
